FAERS Safety Report 8864023 (Version 1)
Quarter: 2012Q4

REPORT INFORMATION
  Report Type: 
  Country: US (occurrence: US)
  Receive Date: 20121024
  Receipt Date: 20121024
  Transmission Date: 20130627
  Serious: No
  Sender: FDA-Public Use
  Company Number: US-AMGEN-USASP2011065496

PATIENT
  Age: 42 Year
  Sex: Female
  Weight: 90.7 kg

DRUGS (9)
  1. ENBREL [Suspect]
     Indication: PRODUCT USED FOR UNKNOWN INDICATION
     Dosage: 50 mg, qwk
  2. METHOTREXATE [Concomitant]
     Dosage: 2.5 mg, UNK
  3. TOPAMAX [Concomitant]
     Dosage: 25 mg, UNK
  4. DICYCLOMINE                        /00068601/ [Concomitant]
     Dosage: UNK
  5. FOLIC ACID [Concomitant]
     Dosage: 1 mg, UNK
  6. CYMBALTA [Concomitant]
     Dosage: 30 mg, UNK
  7. SINGULAIR [Concomitant]
     Dosage: 10 mg, UNK
  8. PROAIR HFA [Concomitant]
     Dosage: UNK
  9. ALLEGRA [Concomitant]
     Dosage: 30 mg, UNK

REACTIONS (1)
  - Bronchitis [Unknown]
